FAERS Safety Report 21314227 (Version 1)
Quarter: 2022Q3

REPORT INFORMATION
  Report Type: Report from Study
  Country: CO (occurrence: None)
  Receive Date: 20220909
  Receipt Date: 20220909
  Transmission Date: 20221026
  Serious: Yes (Death, Hospitalization)
  Sender: FDA-Public Use
  Company Number: 2022A310927

PATIENT
  Age: 21295 Day
  Sex: Female
  Weight: 54 kg

DRUGS (1)
  1. CALQUENCE [Suspect]
     Active Substance: ACALABRUTINIB
     Indication: Chronic lymphocytic leukaemia
     Route: 048
     Dates: start: 20211202, end: 20220824

REACTIONS (3)
  - Nephrolithiasis [Unknown]
  - Death [Fatal]
  - Renal haemorrhage [Unknown]

NARRATIVE: CASE EVENT DATE: 20220824
